FAERS Safety Report 13718705 (Version 1)
Quarter: 2017Q3

REPORT INFORMATION
  Report Type: Spontaneous
  Country: US (occurrence: US)
  Receive Date: 20170705
  Receipt Date: 20170705
  Transmission Date: 20171127
  Serious: Yes (Death, Hospitalization)
  Sender: FDA-Public Use
  Company Number: US-TEVA-783121USA

PATIENT
  Age: 41 Year
  Sex: Female

DRUGS (1)
  1. PROPYLTHIOURACIL. [Suspect]
     Active Substance: PROPYLTHIOURACIL
     Route: 065

REACTIONS (9)
  - Vasculitis necrotising [Fatal]
  - Klebsiella infection [Fatal]
  - Staphylococcal infection [Fatal]
  - Hypersensitivity vasculitis [Fatal]
  - Bacillus infection [Fatal]
  - Escherichia infection [Fatal]
  - Enterococcal infection [Fatal]
  - Septic shock [Fatal]
  - Multiple organ dysfunction syndrome [Fatal]
